FAERS Safety Report 14319162 (Version 1)
Quarter: 2017Q4

REPORT INFORMATION
  Report Type: Spontaneous
  Country: CN (occurrence: CN)
  Receive Date: 20171222
  Receipt Date: 20171222
  Transmission Date: 20180321
  Serious: Yes (Life-Threatening, Other)
  Sender: FDA-Public Use
  Company Number: CN-SA-2017SA253458

PATIENT
  Age: 51 Year
  Sex: Female

DRUGS (21)
  1. PACLITAXEL. [Suspect]
     Active Substance: PACLITAXEL
     Indication: OVARIAN CANCER
     Dosage: PACLITAXEL + CARBOPLATIN REGIMEN
     Route: 065
  2. CISPLATIN. [Suspect]
     Active Substance: CISPLATIN
     Indication: ADENOCARCINOMA
     Dosage: GEMCITABINE + CISPLATINE REGIMEN
     Route: 065
  3. GEMCITABINE [Suspect]
     Active Substance: GEMCITABINE\GEMCITABINE HYDROCHLORIDE
     Indication: ADENOCARCINOMA
     Dosage: GEMCITABINE + CISPLATINE REGIMEN
     Route: 065
  4. OXALIPLATIN. [Suspect]
     Active Substance: OXALIPLATIN
     Indication: ADENOCARCINOMA
     Dosage: LIPOSOMAL DOXORUBICIN COMBINED WITH OXALIPLATIN REGIMEN
     Route: 065
     Dates: start: 2016
  5. OXALIPLATIN. [Suspect]
     Active Substance: OXALIPLATIN
     Indication: OVARIAN CANCER
     Dosage: LIPOSOMAL DOXORUBICIN COMBINED WITH OXALIPLATIN REGIMEN
     Route: 065
     Dates: start: 2016
  6. CARBOPLATIN. [Suspect]
     Active Substance: CARBOPLATIN
     Indication: ADENOCARCINOMA
     Dosage: PACLITAXEL + CARBOPLATIN REGIMEN
     Route: 065
  7. CARBOPLATIN. [Suspect]
     Active Substance: CARBOPLATIN
     Indication: OVARIAN CANCER
     Dosage: PACLITAXEL + CARBOPLATIN REGIMEN
     Route: 065
  8. DOCETAXEL. [Suspect]
     Active Substance: DOCETAXEL
     Indication: ADENOCARCINOMA
     Dosage: DOCETAXEL + CARBOPLATIN REGIMEN
     Route: 065
  9. DOCETAXEL. [Suspect]
     Active Substance: DOCETAXEL
     Indication: NEOPLASM PROGRESSION
     Dosage: DOCETAXEL + CARBOPLATIN REGIMEN
     Route: 065
  10. DOXORUBICIN [Suspect]
     Active Substance: DOXORUBICIN
     Indication: OVARIAN CANCER
     Dosage: LIPOSOMAL DOXORUBICIN COMBINED WITH OXALIPLATIN REGIMEN
     Route: 065
     Dates: start: 2016
  11. GEMCITABINE [Suspect]
     Active Substance: GEMCITABINE\GEMCITABINE HYDROCHLORIDE
     Indication: OVARIAN CANCER
     Dosage: GEMCITABINE + CISPLATINE REGIMEN
     Route: 065
  12. CARBOPLATIN. [Suspect]
     Active Substance: CARBOPLATIN
     Indication: OVARIAN CANCER
     Dosage: DOCETAXEL + CARBOPLATIN REGIMEN
     Route: 065
  13. CISPLATIN. [Suspect]
     Active Substance: CISPLATIN
     Indication: OVARIAN CANCER
     Dosage: GEMCITABINE + CISPLATINE REGIMEN
     Route: 065
  14. DOXORUBICIN [Suspect]
     Active Substance: DOXORUBICIN
     Indication: ADENOCARCINOMA
     Dosage: LIPOSOMAL DOXORUBICIN COMBINED WITH OXALIPLATIN REGIMEN
     Route: 065
     Dates: start: 2016
  15. LOBAPLATIN [Suspect]
     Active Substance: LOBAPLATIN
     Indication: ADENOCARCINOMA
     Dosage: PACLITAXEL LIPOSOME + LOBAPLATIN REGIMEN
     Route: 065
  16. LOBAPLATIN [Suspect]
     Active Substance: LOBAPLATIN
     Indication: OVARIAN CANCER
     Dosage: PACLITAXEL LIPOSOME + LOBAPLATIN REGIMEN
     Route: 065
  17. PACLITAXEL. [Suspect]
     Active Substance: PACLITAXEL
     Indication: OVARIAN CANCER
     Dosage: PACLITAXEL LIPOSOME + LOBAPLATIN REGIMEN
     Route: 065
  18. DOCETAXEL. [Suspect]
     Active Substance: DOCETAXEL
     Indication: OVARIAN CANCER
     Dosage: DOCETAXEL + CARBOPLATIN REGIMEN
     Route: 065
  19. CARBOPLATIN. [Suspect]
     Active Substance: CARBOPLATIN
     Indication: ADENOCARCINOMA
     Dosage: DOCETAXEL + CARBOPLATIN REGIMEN
     Route: 065
  20. PACLITAXEL. [Suspect]
     Active Substance: PACLITAXEL
     Indication: ADENOCARCINOMA
     Dosage: PACLITAXEL LIPOSOME + LOBAPLATIN REGIMEN
     Route: 065
  21. PACLITAXEL. [Suspect]
     Active Substance: PACLITAXEL
     Indication: ADENOCARCINOMA
     Dosage: PACLITAXEL + CARBOPLATIN REGIMEN
     Route: 065

REACTIONS (2)
  - Drug resistance [Unknown]
  - Drug intolerance [Unknown]
